FAERS Safety Report 11239390 (Version 1)
Quarter: 2015Q3

REPORT INFORMATION
  Report Type: Spontaneous
  Country: FI (occurrence: FI)
  Receive Date: 20150706
  Receipt Date: 20150706
  Transmission Date: 20151125
  Serious: Yes (Other)
  Sender: FDA-Public Use
  Company Number: FI-ROCHE-1599297

PATIENT
  Age: 67 Year
  Sex: Male

DRUGS (12)
  1. PROTAPHANE [Concomitant]
     Active Substance: INSULIN HUMAN
     Dosage: ACCORDING TO SEPARATE INSTRUCTIONS
     Route: 058
  2. QUETIAPINE [Interacting]
     Active Substance: QUETIAPINE
     Indication: SCHIZOPHRENIA
     Route: 048
  3. MAREVAN FORTE [Concomitant]
     Active Substance: WARFARIN SODIUM
     Dosage: ACCORDING TO SEPARATE INSTRUCTIONS
     Route: 048
  4. KLEXANE [Concomitant]
     Active Substance: ENOXAPARIN
     Route: 058
  5. OXYNORM [Concomitant]
     Active Substance: OXYCODONE HYDROCHLORIDE
     Indication: PAIN
     Dosage: WHEN NEEDED
     Route: 048
  6. TAMIFLU [Suspect]
     Active Substance: OSELTAMIVIR PHOSPHATE
     Indication: INFLUENZA
     Route: 048
     Dates: start: 20150521, end: 20150526
  7. METOPROLOL TARTRATE. [Concomitant]
     Active Substance: METOPROLOL TARTRATE
     Route: 048
  8. SOMAC [Concomitant]
     Active Substance: PANTOPRAZOLE SODIUM
     Route: 048
  9. FURESIS [Concomitant]
     Active Substance: FUROSEMIDE
     Route: 048
  10. PARAMACET [Concomitant]
     Route: 048
  11. LACTULOSE. [Concomitant]
     Active Substance: LACTULOSE
     Route: 048
  12. GEFILUS [Concomitant]
     Route: 048

REACTIONS (2)
  - Drug interaction [Unknown]
  - Neutropenia [Recovering/Resolving]

NARRATIVE: CASE EVENT DATE: 20150526
